FAERS Safety Report 9089790 (Version 1)
Quarter: 2013Q1

REPORT INFORMATION
  Report Type: Report from Study
  Country: CA (occurrence: CA)
  Receive Date: 20130201
  Receipt Date: 20130201
  Transmission Date: 20140127
  Serious: Yes (Other)
  Sender: FDA-Public Use
  Company Number: CA-JNJFOC-20130113822

PATIENT
  Sex: Female
  Weight: 88 kg

DRUGS (8)
  1. REMICADE [Suspect]
     Indication: CROHN^S DISEASE
     Route: 042
     Dates: start: 20100714
  2. REMICADE [Suspect]
     Indication: CROHN^S DISEASE
     Dosage: 18TH INFUSION
     Route: 042
     Dates: start: 20130121
  3. CYMBALTA [Concomitant]
     Indication: DEPRESSION
     Route: 065
  4. CYMBALTA [Concomitant]
     Indication: ANXIETY
     Route: 065
  5. CLONAZEPAM [Concomitant]
     Indication: DEPRESSION
     Dosage: 1/2 TABLET TWICE DAILY
     Route: 048
  6. CLONAZEPAM [Concomitant]
     Indication: ANXIETY
     Dosage: 1/2 TABLET TWICE DAILY
     Route: 048
  7. TYLENOL [Concomitant]
     Indication: PREMEDICATION
     Route: 048
  8. SOLU-CORTEF [Concomitant]
     Indication: PREMEDICATION
     Route: 042

REACTIONS (1)
  - Trigger finger [Unknown]
